FAERS Safety Report 5330515-3 (Version None)
Quarter: 2007Q2

REPORT INFORMATION
  Report Type: 
  Country: None (occurrence: None)
  Receive Date: 20070517
  Receipt Date: 20070508
  Transmission Date: 20071010
  Serious: No
  Sender: FDA-Public Use
  Company Number: 2007-156259-NL

PATIENT
  Age: 25 Year
  Sex: Female

DRUGS (2)
  1. ETONOGESTREL (BATH #: 779306/850247) [Suspect]
     Dosage: DF
     Dates: start: 20060222, end: 20070321
  2. CHEMOTHERAPY NOS [Concomitant]

REACTIONS (6)
  - ABORTION SPONTANEOUS [None]
  - AMENORRHOEA [None]
  - CERVIX CARCINOMA [None]
  - DRUG EXPOSURE DURING PREGNANCY [None]
  - PREGNANCY WITH IMPLANT CONTRACEPTIVE [None]
  - VAGINAL HAEMORRHAGE [None]
